FAERS Safety Report 6349476-3 (Version None)
Quarter: 2009Q3

REPORT INFORMATION
  Report Type: 
  Country: None (occurrence: None)
  Receive Date: 20090911
  Receipt Date: 20090908
  Transmission Date: 20100115
  Serious: Yes (Death, Hospitalization)
  Sender: FDA-Public Use
  Company Number: BR-ABBOTT-09P-020-0595987-00

PATIENT
  Sex: Female
  Weight: 45 kg

DRUGS (5)
  1. HUMIRA [Suspect]
     Indication: RHEUMATOID ARTHRITIS
     Route: 058
  2. UNKNOWN THERAPIES [Concomitant]
     Indication: RHEUMATOID ARTHRITIS
  3. UNKNOWN THERAPIES [Concomitant]
     Indication: OSTEOARTHRITIS
  4. UNKNOWN THERAPIES [Concomitant]
     Indication: HYPERTENSION
  5. UNKNOWN THERAPIES [Concomitant]
     Indication: DIABETES MELLITUS

REACTIONS (4)
  - CEREBROVASCULAR ACCIDENT [None]
  - HAEMATEMESIS [None]
  - HAEMATOCHEZIA [None]
  - HAEMORRHAGE [None]
